FAERS Safety Report 6569299-X (Version None)
Quarter: 2010Q1

REPORT INFORMATION
  Report Type: 
  Country: None (occurrence: None)
  Receive Date: 20100201
  Receipt Date: 20100201
  Transmission Date: 20100710
  Serious: No
  Sender: FDA-Public Use
  Company Number: None

PATIENT
  Age: 51 Year
  Sex: Male
  Weight: 73 kg

DRUGS (1)
  1. METHYLENE BLUE [Suspect]
     Indication: LUNG DISORDER
     Dosage: 10MG X1 IVP
     Dates: start: 20100129

REACTIONS (2)
  - DYSPNOEA [None]
  - INJECTION SITE PAIN [None]
